FAERS Safety Report 19023680 (Version 1)
Quarter: 2021Q1

REPORT INFORMATION
  Report Type: Spontaneous
  Country: TR (occurrence: TR)
  Receive Date: 20210318
  Receipt Date: 20210318
  Transmission Date: 20210420
  Serious: Yes (Other)
  Sender: FDA-Public Use
  Company Number: TR-TEVA-2021-TR-1890637

PATIENT
  Age: 17 Year
  Sex: Female

DRUGS (6)
  1. SERTRALINE [Interacting]
     Active Substance: SERTRALINE HYDROCHLORIDE
     Indication: MAJOR DEPRESSION
     Dosage: 50 MILLIGRAM DAILY;
     Route: 065
  2. ARIPIPRAZOLE. [Suspect]
     Active Substance: ARIPIPRAZOLE
     Indication: TIC
     Dosage: 2 MILLIGRAM DAILY;
     Route: 065
  3. SERTRALINE [Interacting]
     Active Substance: SERTRALINE HYDROCHLORIDE
     Indication: MAJOR DEPRESSION
     Dosage: 100 MILLIGRAM DAILY; DOSE INCREASED
     Route: 065
  4. LEVOTHYROXINE SODIUM. [Concomitant]
     Active Substance: LEVOTHYROXINE SODIUM
     Indication: AUTOIMMUNE THYROIDITIS
     Route: 065
  5. ARIPIPRAZOLE. [Interacting]
     Active Substance: ARIPIPRAZOLE
     Indication: TIC
     Dosage: 2 MILLIGRAM DAILY; RECOMMENCED
     Route: 065
  6. ARIPIPRAZOLE. [Interacting]
     Active Substance: ARIPIPRAZOLE
     Indication: TIC
     Dosage: 4 MILLIGRAM DAILY; DOSE INCREASED
     Route: 065

REACTIONS (5)
  - Thyroxine decreased [Recovered/Resolved]
  - Hyperprolactinaemia [Recovered/Resolved]
  - Tri-iodothyronine decreased [Recovered/Resolved]
  - Blood thyroid stimulating hormone increased [Recovered/Resolved]
  - Drug interaction [Recovered/Resolved]
